FAERS Safety Report 25470211 (Version 1)
Quarter: 2025Q2

REPORT INFORMATION
  Report Type: Report from Study
  Country: US (occurrence: US)
  Receive Date: 20250623
  Receipt Date: 20250623
  Transmission Date: 20250716
  Serious: Yes (Other)
  Sender: ABBVIE
  Company Number: US-ABBVIE-6196807

PATIENT
  Age: 72 Year
  Sex: Female

DRUGS (2)
  1. RINVOQ [Suspect]
     Active Substance: UPADACITINIB
     Indication: Product used for unknown indication
     Route: 048
     Dates: start: 20220826
  2. RINVOQ [Suspect]
     Active Substance: UPADACITINIB
     Indication: Product used for unknown indication
     Route: 048
     Dates: start: 20220923

REACTIONS (15)
  - Surgery [Unknown]
  - Spinal stenosis [Unknown]
  - Cyst [Unknown]
  - Respiratory disorder [Unknown]
  - Respiratory tract infection [Recovering/Resolving]
  - COVID-19 [Unknown]
  - Nasopharyngitis [Unknown]
  - Hormone level abnormal [Not Recovered/Not Resolved]
  - Pulmonary thrombosis [Unknown]
  - Full blood count decreased [Not Recovered/Not Resolved]
  - Contusion [Unknown]
  - Muscle strain [Recovered/Resolved]
  - Condition aggravated [Recovered/Resolved]
  - Illness [Not Recovered/Not Resolved]
  - Cardiac ventricular thrombosis [Unknown]

NARRATIVE: CASE EVENT DATE: 20221201
